FAERS Safety Report 5958204-2 (Version None)
Quarter: 2008Q4

REPORT INFORMATION
  Report Type: 
  Country: None (occurrence: None)
  Receive Date: 20081117
  Receipt Date: 20081117
  Transmission Date: 20090506
  Serious: Yes (Other)
  Sender: FDA-Public Use
  Company Number: None

PATIENT
  Age: 30 Year
  Sex: Male
  Weight: 99.7913 kg

DRUGS (1)
  1. PREDNISONE TAB [Suspect]
     Indication: ASTHMA
     Dosage: 20MG TO 30MG PER DAY PO
     Route: 048
     Dates: start: 19921127, end: 19971015

REACTIONS (4)
  - ARTERIOSCLEROSIS [None]
  - BONE DISORDER [None]
  - DISABILITY [None]
  - MYOPATHY [None]
